FAERS Safety Report 18243249 (Version 1)
Quarter: 2020Q3

REPORT INFORMATION
  Report Type: Spontaneous
  Country: HR (occurrence: HR)
  Receive Date: 20200908
  Receipt Date: 20200908
  Transmission Date: 20201103
  Serious: Yes (Life-Threatening, Hospitalization, Disabling, Other)
  Sender: FDA-Public Use
  Company Number: HR-PFIZER INC-2020345755

PATIENT
  Age: 36 Year
  Sex: Female
  Weight: 50 kg

DRUGS (5)
  1. MEDROL [Suspect]
     Active Substance: METHYLPREDNISOLONE
     Indication: AUTOIMMUNE DISORDER
     Dosage: 40 TBL (TABLET) ? 32 ? 16
     Route: 048
     Dates: start: 20190719
  2. SOLU?MEDROL [Suspect]
     Active Substance: METHYLPREDNISOLONE SODIUM SUCCINATE
     Indication: AUTOIMMUNE DISORDER
     Dosage: 80 MG, 1X/DAY
     Route: 042
     Dates: start: 20190719
  3. DECORTIN [Suspect]
     Active Substance: PREDNISONE
     Indication: AUTOIMMUNE DISORDER
     Dosage: 20 MG, 1X/DAY
     Route: 048
     Dates: start: 20190615
  4. IMURAN [Suspect]
     Active Substance: AZATHIOPRINE
     Indication: AUTOIMMUNE DISORDER
     Dosage: 50 MG, WEEKLY (100 MG; 50 MG FOR A WEEK, THEN 100 MG)
     Route: 048
     Dates: start: 20191110
  5. PROPILTIOURACIL ALKALOID [Suspect]
     Active Substance: PROPYLTHIOURACIL
     Indication: HYPERTHYROIDISM
     Dosage: 50 MG, 3X/DAY (FREQUENCY 0.33 DAY)
     Route: 048

REACTIONS (22)
  - Rash [Recovering/Resolving]
  - Condition aggravated [Unknown]
  - Weight increased [Recovered/Resolved]
  - Skin atrophy [Recovering/Resolving]
  - Gingival pain [Recovered/Resolved]
  - Somnolence [Recovered/Resolved]
  - Visual impairment [Recovering/Resolving]
  - Abdominal pain [Recovered/Resolved]
  - Paraesthesia [Recovered/Resolved]
  - Hypertrichosis [Recovering/Resolving]
  - Fat tissue increased [Recovering/Resolving]
  - Initial insomnia [Recovered/Resolved]
  - Alopecia [Recovered/Resolved]
  - Muscle atrophy [Recovering/Resolving]
  - Skin exfoliation [Recovering/Resolving]
  - Dyspepsia [Recovering/Resolving]
  - Hyperhidrosis [Recovered/Resolved]
  - Hepatic enzyme increased [Recovering/Resolving]
  - Bone pain [Recovered/Resolved]
  - Increased appetite [Recovered/Resolved]
  - Dark circles under eyes [Recovering/Resolving]
  - Urinary tract infection [Recovered/Resolved]

NARRATIVE: CASE EVENT DATE: 2019
